FAERS Safety Report 4530060-9 (Version None)
Quarter: 2004Q4

REPORT INFORMATION
  Report Type: 
  Country: None (occurrence: None)
  Receive Date: 20041215
  Receipt Date: 20030610
  Transmission Date: 20050328
  Serious: Yes (Death, Hospitalization)
  Sender: FDA-Public Use
  Company Number: MEDI-0002503

PATIENT
  Age: 75 Year
  Sex: Male
  Weight: 83.0083 kg

DRUGS (9)
  1. ETHYOL [Suspect]
     Indication: RADIOTHERAPY
     Dosage: 500 MG, 5 IN 1 WK, SUBCUTANEOUS
     Route: 058
     Dates: start: 20030519, end: 20030627
  2. RADIATION THERAPY [Concomitant]
  3. TAXOL [Concomitant]
  4. GLUCOPHAGE [Concomitant]
  5. GLIPIZIDE (GLIPIDIZIDE) [Concomitant]
  6. FLOMAX [Concomitant]
  7. LIPITOR [Concomitant]
  8. ZOFRAN [Concomitant]
  9. CARBOPLATIN [Concomitant]

REACTIONS (5)
  - DEHYDRATION [None]
  - NAUSEA [None]
  - OESOPHAGITIS [None]
  - UNEVALUABLE EVENT [None]
  - VOMITING [None]
